FAERS Safety Report 16608028 (Version 5)
Quarter: 2019Q4

REPORT INFORMATION
  Report Type: Spontaneous
  Country: DE (occurrence: DE)
  Receive Date: 20190722
  Receipt Date: 20191105
  Transmission Date: 20200122
  Serious: Yes (Death, Hospitalization, Other)
  Sender: FDA-Public Use
  Company Number: DE-PFIZER INC-2019309743

PATIENT
  Age: 81 Year
  Sex: Male

DRUGS (9)
  1. SIMVASTATIN. [Concomitant]
     Active Substance: SIMVASTATIN
     Dosage: 20 MILLIGRAM, QD
  2. ELIQUIS [Suspect]
     Active Substance: APIXABAN
     Dosage: 2.5 MILLIGRAM, BID
  3. EPLERENONE. [Suspect]
     Active Substance: EPLERENONE
     Dosage: 1 DOSAGE FORM (50 MG, 2-0-0-0)
  4. TORASEMID [Suspect]
     Active Substance: TORSEMIDE
     Dosage: 1 DOSAGE FORM (10 MG, 2-2-0-0)
  5. HUMALOG [Concomitant]
     Active Substance: INSULIN LISPRO
     Dosage: UNK
     Route: 058
  6. ASPIRIN. [Suspect]
     Active Substance: ASPIRIN
     Dosage: 100 MILLIGRAM, QD
  7. PANTOPRAZOLE [Concomitant]
     Active Substance: PANTOPRAZOLE
     Dosage: 40 MILLIGRAM, QD
     Route: 065
  8. DIPIPERON [Concomitant]
     Active Substance: PIPAMPERONE
     Dosage: 48 MILLIGRAM, QD
     Route: 065
  9. LANTUS [Concomitant]
     Active Substance: INSULIN GLARGINE
     Dosage: UNK
     Route: 058

REACTIONS (5)
  - Anaemia [Unknown]
  - Blood creatinine increased [Unknown]
  - Asthenia [Unknown]
  - Dehydration [Unknown]
  - Glomerular filtration rate decreased [Unknown]
